FAERS Safety Report 8145034-9 (Version None)
Quarter: 2012Q1

REPORT INFORMATION
  Report Type: 
  Country: None (occurrence: None)
  Receive Date: 20120217
  Receipt Date: 20120210
  Transmission Date: 20120608
  Serious: Yes (Hospitalization)
  Sender: FDA-Public Use
  Company Number: PHHY2011NL111925

PATIENT
  Sex: Female

DRUGS (5)
  1. ZOMETA [Suspect]
     Dosage: 4 MG/5 ML, 1X PER 28 DAYS
     Route: 042
     Dates: start: 20111222
  2. ZOMETA [Suspect]
     Indication: BREAST CANCER METASTATIC
     Dosage: 4 MG/5 ML, 1X PER 28 DAYS
     Route: 042
  3. ZOMETA [Suspect]
     Dosage: 4 MG/5 ML, 1X PER 28 DAYS
     Route: 042
     Dates: start: 20111110
  4. ZOMETA [Suspect]
     Dosage: 4 MG/5 ML, 1X PER 28 DAYS
     Route: 042
     Dates: start: 20100920
  5. CHEMOTHERAPEUTICS [Concomitant]

REACTIONS (5)
  - DYSPNOEA [None]
  - INSOMNIA [None]
  - PLEURAL EFFUSION [None]
  - SENSE OF OPPRESSION [None]
  - CARDIAC DISORDER [None]
